FAERS Safety Report 9229012 (Version 1)
Quarter: 2013Q2

REPORT INFORMATION
  Report Type: Spontaneous
  Country: DE (occurrence: DE)
  Receive Date: 20130412
  Receipt Date: 20130412
  Transmission Date: 20140414
  Serious: Yes (Other)
  Sender: FDA-Public Use
  Company Number: DE-VERTEX PHARMACEUTICALS INC.-2013-004850

PATIENT
  Age: 52 Year
  Sex: Female

DRUGS (13)
  1. INCIVO [Suspect]
     Indication: CHRONIC HEPATITIS C
     Dosage: 2250 MG, QD
     Route: 048
     Dates: start: 20120511, end: 20120729
  2. PEGASYS [Suspect]
     Indication: CHRONIC HEPATITIS C
     Dosage: DOSAGE FORM: UNKNOWN
     Route: 058
     Dates: start: 20120511
  3. COPEGUS [Suspect]
     Indication: CHRONIC HEPATITIS C
     Dosage: DOSAGE FORM: TABLETS
     Route: 048
     Dates: start: 20120511
  4. L-THYROXINE [Concomitant]
  5. SPIRONOLACTONE [Concomitant]
  6. PANTOPRAZOLE [Concomitant]
  7. PROPRANOLOL [Concomitant]
  8. LOPERAMIDE [Concomitant]
  9. DERMATOP [Concomitant]
     Dates: end: 20120730
  10. ATARAX [Concomitant]
     Dates: start: 20120730
  11. BETAGALEN [Concomitant]
     Dates: start: 20120730
  12. MAGNESIUM [Concomitant]
  13. DASSELTA [Concomitant]

REACTIONS (1)
  - Rash [Recovered/Resolved]
